FAERS Safety Report 13956488 (Version 1)
Quarter: 2017Q3

REPORT INFORMATION
  Report Type: Report from Study
  Country: US (occurrence: US)
  Receive Date: 20170911
  Receipt Date: 20170911
  Transmission Date: 20171128
  Serious: Yes (Other)
  Sender: FDA-Public Use
  Company Number: US-GILEAD-2017-0284431

PATIENT
  Age: 34 Year
  Sex: Female

DRUGS (4)
  1. ORENITRAM [Suspect]
     Active Substance: TREPROSTINIL
     Indication: PRODUCT USED FOR UNKNOWN INDICATION
     Dosage: 20.5 MG, TID
     Route: 065
  2. ADCIRCA [Concomitant]
     Active Substance: TADALAFIL
  3. AMBRISENTAN [Suspect]
     Active Substance: AMBRISENTAN
     Indication: PRODUCT USED FOR UNKNOWN INDICATION
     Dosage: 10 MG, QD
     Route: 065
     Dates: start: 20141213
  4. ORENITRAM [Suspect]
     Active Substance: TREPROSTINIL
     Dosage: 22.5 MG, TID
     Route: 065
     Dates: start: 20170828

REACTIONS (5)
  - Diverticulitis [Not Recovered/Not Resolved]
  - Vomiting [Unknown]
  - Blood electrolytes abnormal [Recovering/Resolving]
  - Fluid retention [Recovering/Resolving]
  - Diarrhoea [Unknown]

NARRATIVE: CASE EVENT DATE: 20170904
